FAERS Safety Report 14226424 (Version 1)
Quarter: 2017Q4

REPORT INFORMATION
  Report Type: Spontaneous
  Country: DE (occurrence: DE)
  Receive Date: 20171127
  Receipt Date: 20171127
  Transmission Date: 20180321
  Serious: Yes (Disabling, Other)
  Sender: FDA-Public Use
  Company Number: DE-BAYER-2017-221954

PATIENT
  Age: 57 Year
  Sex: Female
  Weight: 53 kg

DRUGS (3)
  1. GADOVIST [Suspect]
     Active Substance: GADOBUTROL
     Indication: CORONARY ARTERY DISEASE
  2. GADOVIST [Suspect]
     Active Substance: GADOBUTROL
     Indication: NUCLEAR MAGNETIC RESONANCE IMAGING HEART
     Dosage: 4 ML, ONCE
     Route: 042
  3. ADENOSIN [Concomitant]

REACTIONS (8)
  - Speech disorder [Recovered/Resolved]
  - Altered state of consciousness [Recovered/Resolved]
  - Photopsia [Recovering/Resolving]
  - Autoimmune thyroiditis [None]
  - Crying [Recovered/Resolved]
  - Hyposmia [Recovering/Resolving]
  - Head discomfort [Recovering/Resolving]
  - Feeling cold [Recovered/Resolved]

NARRATIVE: CASE EVENT DATE: 20170824
